FAERS Safety Report 24040666 (Version 1)
Quarter: 2024Q3

REPORT INFORMATION
  Report Type: Spontaneous
  Country: IL (occurrence: None)
  Receive Date: 20240702
  Receipt Date: 20240702
  Transmission Date: 20241017
  Serious: Yes (Other)
  Sender: ASTRAZENECA
  Company Number: 2024A151141

PATIENT
  Age: 78 Year
  Sex: Female

DRUGS (4)
  1. SEROQUEL [Suspect]
     Active Substance: QUETIAPINE FUMARATE
     Route: 048
  2. CONTROLOC [Concomitant]
     Active Substance: PANTOPRAZOLE SODIUM
  3. ASPIRIN [Concomitant]
     Active Substance: ASPIRIN
  4. VANCOMYCIN [Concomitant]
     Active Substance: VANCOMYCIN

REACTIONS (6)
  - Tardive dyskinesia [Unknown]
  - Gastrointestinal haemorrhage [Unknown]
  - Pneumonia [Unknown]
  - Anaemia [Unknown]
  - Decubitus ulcer [Unknown]
  - Extremity necrosis [Unknown]
